FAERS Safety Report 6348800-5 (Version None)
Quarter: 2009Q3

REPORT INFORMATION
  Report Type: 
  Country: None (occurrence: None)
  Receive Date: 20090911
  Receipt Date: 20090902
  Transmission Date: 20100115
  Serious: Yes (Hospitalization)
  Sender: FDA-Public Use
  Company Number: GB-ASTRAZENECA-2009SE06399

PATIENT
  Age: 75 Year
  Sex: Male
  Weight: 90 kg

DRUGS (6)
  1. ZOLADEX [Suspect]
     Indication: PROSTATE CANCER
     Route: 058
     Dates: start: 20090502
  2. OMEPRAZOLE [Concomitant]
     Indication: DYSPEPSIA
     Route: 048
  3. PAROXETINE HCL [Concomitant]
     Indication: DEPRESSION
     Route: 048
  4. SIMVASTATIN [Concomitant]
     Indication: BLOOD CHOLESTEROL INCREASED
     Route: 048
  5. CO CODAMOL [Concomitant]
     Indication: PAIN
     Dosage: 8/500 ONE TABLET AS REQUIRED
     Route: 048
     Dates: start: 20090701
  6. CLEXANE [Concomitant]
     Indication: PULMONARY EMBOLISM
     Route: 058
     Dates: start: 20090701

REACTIONS (1)
  - ORTHOSTATIC HYPOTENSION [None]
